FAERS Safety Report 5199164-4 (Version None)
Quarter: 2007Q1

REPORT INFORMATION
  Report Type: 
  Country: None (occurrence: None)
  Receive Date: 20070104
  Receipt Date: 20061227
  Transmission Date: 20070707
  Serious: Yes (Hospitalization)
  Sender: FDA-Public Use
  Company Number: BR-PFIZER INC-2006103990

PATIENT
  Age: 17 Year
  Sex: Female

DRUGS (3)
  1. VFEND TABLETS [Suspect]
     Indication: LUNG INFECTION
     Route: 048
  2. VFEND TABLETS [Suspect]
     Dosage: DAILY DOSE:200MG
     Route: 048
  3. CHEMOTHERAPY NOS [Concomitant]
     Route: 042

REACTIONS (5)
  - FUNGAL INFECTION [None]
  - INTENTIONAL DRUG MISUSE [None]
  - NEUTROPENIA [None]
  - PLATELET COUNT DECREASED [None]
  - PYREXIA [None]
